FAERS Safety Report 4334579-5 (Version None)
Quarter: 2004Q2

REPORT INFORMATION
  Report Type: 
  Country: None (occurrence: None)
  Receive Date: 20040407
  Receipt Date: 20040315
  Transmission Date: 20050107
  Serious: Yes (Hospitalization)
  Sender: FDA-Public Use
  Company Number: RU-BRISTOL-MYERS SQUIBB COMPANY-12534145

PATIENT
  Age: 73 Year
  Sex: Female
  Weight: 60 kg

DRUGS (5)
  1. IRBESARTAN [Suspect]
     Indication: HYPERTENSION
     Route: 048
     Dates: start: 20040213
  2. CLOPIDOGREL BISULFATE [Suspect]
     Dates: start: 20040213
  3. ASPIRIN [Concomitant]
     Dates: start: 20040213
  4. CINNARIZINE [Concomitant]
  5. AMINALON [Concomitant]

REACTIONS (5)
  - CONTUSION [None]
  - FALL [None]
  - HEAD INJURY [None]
  - HYPOTENSION [None]
  - LOSS OF CONSCIOUSNESS [None]
